FAERS Safety Report 4864815-8 (Version None)
Quarter: 2005Q4

REPORT INFORMATION
  Report Type: 
  Country: None (occurrence: None)
  Receive Date: 20051201
  Receipt Date: 20050704
  Transmission Date: 20060501
  Serious: No
  Sender: FDA-Public Use
  Company Number: 2005PV000274

PATIENT
  Age: 81 Year
  Sex: Female
  Weight: 67.1324 kg

DRUGS (11)
  1. BYETTA [Suspect]
     Indication: DIABETES MELLITUS NON-INSULIN-DEPENDENT
     Dosage: 5 MCG; BID; SC
     Route: 058
     Dates: start: 20050702
  2. SYNTHROID [Concomitant]
  3. ACTOS [Concomitant]
  4. LIPITOR [Concomitant]
  5. MULTIVITAMIN [Concomitant]
  6. PRANDIN [Concomitant]
  7. HYDROCHLOROTHIAZIDE [Concomitant]
  8. CALCIUM GLUCONATE [Concomitant]
  9. ASPIRIN [Concomitant]
  10. PRANDIN [Concomitant]
  11. HYDROCHLOROTHIAZIDE [Concomitant]

REACTIONS (9)
  - ACCIDENTAL OVERDOSE [None]
  - BLOOD GLUCOSE DECREASED [None]
  - DIARRHOEA [None]
  - DIZZINESS [None]
  - FATIGUE [None]
  - INJECTION SITE BRUISING [None]
  - INJECTION SITE HAEMORRHAGE [None]
  - NAUSEA [None]
  - PARAESTHESIA [None]
